FAERS Safety Report 5909320-2 (Version None)
Quarter: 2008Q4

REPORT INFORMATION
  Report Type: 
  Country: None (occurrence: None)
  Receive Date: 20081006
  Receipt Date: 20080930
  Transmission Date: 20090506
  Serious: Yes (Hospitalization)
  Sender: FDA-Public Use
  Company Number: US-ABBOTT-08P-163-0477417-00

PATIENT
  Sex: Female
  Weight: 87.622 kg

DRUGS (4)
  1. HUMIRA [Suspect]
     Indication: CROHN'S DISEASE
     Route: 050
     Dates: start: 20070701, end: 20080501
  2. METRONIDAZOLE [Concomitant]
     Indication: INFECTION
     Route: 048
  3. PANTOPRAZOLE SODIUM [Concomitant]
     Indication: GASTRIC DISORDER
     Route: 048
  4. WARFARIN SODIUM [Concomitant]
     Indication: THROMBOSIS PROPHYLAXIS
     Route: 048

REACTIONS (4)
  - COLOSTOMY [None]
  - CROHN'S DISEASE [None]
  - DRUG INEFFECTIVE [None]
  - POST PROCEDURAL FISTULA [None]
